FAERS Safety Report 5391152-8 (Version None)
Quarter: 2007Q3

REPORT INFORMATION
  Report Type: 
  Country: None (occurrence: None)
  Receive Date: 20070719
  Receipt Date: 20070713
  Transmission Date: 20080115
  Serious: Yes (Death, Life-Threatening, Hospitalization, Other)
  Sender: FDA-Public Use
  Company Number: PHEH2007US09541

PATIENT
  Sex: Male

DRUGS (13)
  1. TEKTURNA [Suspect]
     Route: 048
  2. ASPIRIN [Concomitant]
     Dosage: 325 MG, QD
     Route: 048
     Dates: start: 20070501
  3. HECTOROL [Concomitant]
     Dosage: 0.5 MG, QD
     Route: 048
     Dates: start: 20070501
  4. DOXAZOSIN MESYLATE [Concomitant]
     Dosage: 2 MG, BID
     Route: 048
     Dates: start: 20070501
  5. LASIX [Concomitant]
     Dosage: 80 MG, QD
     Route: 048
     Dates: start: 20070501
  6. COREG [Concomitant]
     Dosage: 6.25 MG, BID
     Route: 048
     Dates: start: 20070517
  7. PROSCAR [Concomitant]
     Dosage: 5 MG, QD
     Route: 048
     Dates: start: 20050101
  8. GLUCOTROL [Concomitant]
     Dosage: 5 MG, BID
     Route: 048
     Dates: start: 20050701
  9. ZETIA [Concomitant]
     Dosage: 10 MG, QD
     Route: 048
     Dates: start: 20070101
  10. CRESTOR [Concomitant]
     Dosage: 100 MG, QD
     Route: 048
     Dates: start: 20060901
  11. ALLOPURINOL [Concomitant]
     Dosage: 300 MG, QD
     Route: 048
     Dates: start: 20070101
  12. TEVETEN [Concomitant]
     Dosage: 600 MG, QD
     Route: 048
     Dates: start: 20060101
  13. KEFZOL [Suspect]
     Indication: URINARY TRACT INFECTION
     Dates: start: 20070623

REACTIONS (22)
  - BLOOD CALCIUM DECREASED [None]
  - BLOOD CREATININE INCREASED [None]
  - BLOOD GLUCOSE INCREASED [None]
  - BLOOD IMMUNOGLOBULIN E INCREASED [None]
  - BLOOD UREA INCREASED [None]
  - CARDIAC FAILURE CONGESTIVE [None]
  - CHEST X-RAY ABNORMAL [None]
  - COMPUTERISED TOMOGRAM ABNORMAL [None]
  - DEATH [None]
  - EOSINOPHIL COUNT INCREASED [None]
  - ERYTHEMA [None]
  - HAEMATURIA [None]
  - HAEMOGLOBIN DECREASED [None]
  - INTUBATION [None]
  - NEUTROPHIL COUNT INCREASED [None]
  - PLEURAL EFFUSION [None]
  - PRURITUS [None]
  - RASH [None]
  - SKIN LESION [None]
  - STEVENS-JOHNSON SYNDROME [None]
  - URINARY TRACT INFECTION [None]
  - WHITE BLOOD CELL COUNT INCREASED [None]
